FAERS Safety Report 6128104-6 (Version None)
Quarter: 2009Q1

REPORT INFORMATION
  Report Type: 
  Country: None (occurrence: None)
  Receive Date: 20090320
  Receipt Date: 20090320
  Transmission Date: 20090719
  Serious: Yes (Hospitalization)
  Sender: FDA-Public Use
  Company Number: None

PATIENT
  Age: 32 Year
  Sex: Female
  Weight: 77.4 kg

DRUGS (1)
  1. YAZ [Suspect]
     Indication: CONTRACEPTION
     Dosage: 24 ACTIVE TABLETS AND 4 INACTI  1 TABLET PER DAY PO
     Route: 048
     Dates: start: 20080901, end: 20090315

REACTIONS (1)
  - PULMONARY EMBOLISM [None]
